FAERS Safety Report 10664916 (Version 1)
Quarter: 2014Q4

REPORT INFORMATION
  Report Type: Spontaneous
  Country: GB (occurrence: GB)
  Receive Date: 20141219
  Receipt Date: 20141219
  Transmission Date: 20150529
  Serious: Yes (Life-Threatening, Other)
  Sender: FDA-Public Use
  Company Number: GB-ROXANE LABORATORIES, INC.-2014-RO-01899RO

PATIENT
  Age: 10 Year
  Sex: Male
  Weight: 16 kg

DRUGS (6)
  1. DIAZEPAM. [Suspect]
     Active Substance: DIAZEPAM
     Indication: DYSTONIA
  2. MORPHINE [Suspect]
     Active Substance: MORPHINE
     Indication: MUSCLE SPASTICITY
     Route: 065
  3. BACLOFEN. [Suspect]
     Active Substance: BACLOFEN
     Indication: MUSCLE SPASTICITY
     Route: 037
  4. DIAZEPAM. [Suspect]
     Active Substance: DIAZEPAM
     Indication: MUSCLE SPASTICITY
     Route: 065
  5. MORPHINE [Suspect]
     Active Substance: MORPHINE
     Indication: DYSTONIA
  6. BACLOFEN. [Suspect]
     Active Substance: BACLOFEN
     Indication: DYSTONIA

REACTIONS (4)
  - Respiratory depression [Unknown]
  - Gastrointestinal motility disorder [Unknown]
  - Pseudomonas infection [Recovered/Resolved]
  - Sedation [Unknown]
